FAERS Safety Report 15537251 (Version 2)
Quarter: 2018Q4

REPORT INFORMATION
  Report Type: Spontaneous
  Country: CA (occurrence: CA)
  Receive Date: 20181022
  Receipt Date: 20181030
  Transmission Date: 20190205
  Serious: Yes (Life-Threatening, Hospitalization, Other)
  Sender: FDA-Public Use
  Company Number: CA-NOVOPROD-627758

PATIENT
  Age: 41 Year
  Sex: Female

DRUGS (6)
  1. GLUCOSE [Suspect]
     Active Substance: DEXTROSE
     Dosage: 50.0 ML
     Route: 042
  2. NOVORAPID [Suspect]
     Active Substance: INSULIN ASPART
     Indication: SUICIDE ATTEMPT
     Dosage: 300.0 IU
     Route: 058
  3. ZOPICLONE [Suspect]
     Active Substance: ZOPICLONE
     Indication: SUICIDE ATTEMPT
     Dosage: 45 MILLIGRAM
     Route: 048
  4. CLONAZEPAM. [Suspect]
     Active Substance: CLONAZEPAM
     Indication: PRODUCT USED FOR UNKNOWN INDICATION
     Dosage: 2 MILLIGRAM
     Route: 048
  5. GLUCOSE [Suspect]
     Active Substance: DEXTROSE
     Dosage: 2000.0 ML
     Route: 042
  6. GLUCOSE [Suspect]
     Active Substance: DEXTROSE
     Indication: PRODUCT USED FOR UNKNOWN INDICATION
     Dosage: 12 DOSAGE FORMS
     Route: 042

REACTIONS (9)
  - Intentional overdose [Unknown]
  - Blood pressure decreased [Unknown]
  - Lethargy [Recovered/Resolved]
  - Suicide attempt [Unknown]
  - Blood potassium decreased [Unknown]
  - Hypoglycaemia [Recovered/Resolved]
  - Oedema peripheral [Recovered/Resolved]
  - Ataxia [Recovered/Resolved]
  - Hyperhidrosis [Recovered/Resolved]
